FAERS Safety Report 9849820 (Version 2)
Quarter: 2014Q1

REPORT INFORMATION
  Report Type: Report from Study
  Country: DE (occurrence: DE)
  Receive Date: 20140128
  Receipt Date: 20140210
  Transmission Date: 20141002
  Serious: Yes (Death)
  Sender: FDA-Public Use
  Company Number: DE-ALLERGAN-1401318US

PATIENT
  Age: 76 Year
  Sex: Male
  Weight: 52 kg

DRUGS (2)
  1. BIMATOPROST [Suspect]
     Indication: PRODUCT USED FOR UNKNOWN INDICATION
     Dosage: UNK
     Route: 047
     Dates: start: 20130923, end: 201310
  2. TIMOSINE [Concomitant]
     Indication: OPEN ANGLE GLAUCOMA
     Dosage: UNK
     Dates: start: 20121123, end: 201310

REACTIONS (1)
  - Death [Fatal]
